FAERS Safety Report 9107767 (Version 2)
Quarter: 2013Q1

REPORT INFORMATION
  Report Type: Spontaneous
  Country: CA (occurrence: CA)
  Receive Date: 20130221
  Receipt Date: 20130325
  Transmission Date: 20140127
  Serious: Yes (Hospitalization)
  Sender: FDA-Public Use
  Company Number: CA-BIOGENIDEC-2013BI016161

PATIENT
  Age: 59 Year
  Sex: Male

DRUGS (9)
  1. TYSABRI [Suspect]
     Indication: RELAPSING-REMITTING MULTIPLE SCLEROSIS
     Route: 042
     Dates: start: 20100607
  2. VITAMIN D [Concomitant]
  3. EVENING PRIMROSE OIL [Concomitant]
  4. VITAMIN B COMPLEX 50 [Concomitant]
  5. MVI [Concomitant]
  6. SYMMETREL [Concomitant]
  7. LIORESAL [Concomitant]
  8. ATIVAN [Concomitant]
  9. VITAMIN B12 [Concomitant]

REACTIONS (6)
  - Off label use [Unknown]
  - Head injury [Recovered/Resolved]
  - Ataxia [Recovered/Resolved]
  - Fall [Recovered/Resolved]
  - Influenza [Recovered/Resolved]
  - Blood pressure increased [Unknown]
